FAERS Safety Report 10153588 (Version 1)
Quarter: 2014Q2

REPORT INFORMATION
  Report Type: Spontaneous
  Country: CA (occurrence: CA)
  Receive Date: 20140505
  Receipt Date: 20140505
  Transmission Date: 20141212
  Serious: Yes (Life-Threatening, Hospitalization, Other)
  Sender: FDA-Public Use
  Company Number: CA-MERCK-1405CAN000242

PATIENT
  Age: 68 Year
  Sex: Male
  Weight: 85.71 kg

DRUGS (5)
  1. JANUVIA [Suspect]
     Dosage: 100 MG, QD
     Route: 048
  2. COZAAR [Concomitant]
     Route: 048
  3. LANTUS [Concomitant]
     Route: 048
  4. SYMBICORT 200 TURBUHALER [Concomitant]
     Route: 048
  5. TIAZAC [Concomitant]
     Route: 048

REACTIONS (6)
  - Acute coronary syndrome [Recovered/Resolved]
  - Blood cholesterol abnormal [Recovered/Resolved]
  - Drug intolerance [Recovered/Resolved]
  - Asthenia [Recovered/Resolved]
  - Malaise [Recovered/Resolved]
  - Arthralgia [Recovered/Resolved]
